FAERS Safety Report 23485143 (Version 1)
Quarter: 2024Q1

REPORT INFORMATION
  Report Type: Spontaneous
  Country: EU (occurrence: None)
  Receive Date: 20240206
  Receipt Date: 20240206
  Transmission Date: 20240410
  Serious: Yes (Death)
  Sender: FDA-Public Use
  Company Number: None

PATIENT
  Weight: 66 kg

DRUGS (4)
  1. BUPRENORPHINE HYDROCHLORIDE [Suspect]
     Active Substance: BUPRENORPHINE HYDROCHLORIDE
     Dates: end: 20220831
  2. CANNABIS SATIVA SUBSP. INDICA TOP [Suspect]
     Active Substance: CANNABIS SATIVA SUBSP. INDICA TOP
     Dates: end: 20220831
  3. COCAINE [Suspect]
     Active Substance: COCAINE
     Dates: end: 20220831
  4. METHADONE [Suspect]
     Active Substance: METHADONE HYDROCHLORIDE
     Dates: end: 20220831

REACTIONS (3)
  - Substance use disorder [Fatal]
  - Fall [Fatal]
  - Drug use disorder [Fatal]

NARRATIVE: CASE EVENT DATE: 20220831
